FAERS Safety Report 22283762 (Version 1)
Quarter: 2023Q2

REPORT INFORMATION
  Report Type: Spontaneous
  Country: US (occurrence: US)
  Receive Date: 20230504
  Receipt Date: 20230504
  Transmission Date: 20230721
  Serious: No
  Sender: FDA-Public Use
  Company Number: US-TEVA-2023-US-2880535

PATIENT
  Age: 41 Year
  Sex: Female

DRUGS (1)
  1. NEOMYCIN [Suspect]
     Active Substance: NEOMYCIN
     Indication: Product used for unknown indication
     Route: 065

REACTIONS (5)
  - Flatulence [Unknown]
  - Abdominal distension [Unknown]
  - Nausea [Unknown]
  - Abdominal pain upper [Unknown]
  - Gastrointestinal pain [Unknown]
